FAERS Safety Report 6125796-2 (Version None)
Quarter: 2009Q1

REPORT INFORMATION
  Report Type: 
  Country: None (occurrence: None)
  Receive Date: 20090319
  Receipt Date: 20090319
  Transmission Date: 20090719
  Serious: No
  Sender: FDA-Public Use
  Company Number: None

PATIENT
  Age: 50 Year
  Sex: Male

DRUGS (1)
  1. IBUPROFEN [Suspect]
     Indication: PAIN
     Dosage: 1 TABLET 3 TIMES DAILY PO
     Route: 048
     Dates: start: 20090129, end: 20090210

REACTIONS (2)
  - DYSPEPSIA [None]
  - PRODUCT QUALITY ISSUE [None]
